FAERS Safety Report 12397623 (Version 8)
Quarter: 2016Q3

REPORT INFORMATION
  Report Type: Report from Study
  Country: CN (occurrence: CN)
  Receive Date: 20160524
  Receipt Date: 20160802
  Transmission Date: 20161109
  Serious: Yes (Other)
  Sender: FDA-Public Use
  Company Number: PHHY2016CN058405

PATIENT
  Age: 37 Year
  Sex: Female

DRUGS (54)
  1. BASILIXIMAB [Suspect]
     Active Substance: BASILIXIMAB
     Indication: PROPHYLAXIS AGAINST TRANSPLANT REJECTION
     Dosage: 20 MG, QD
     Route: 042
     Dates: start: 20160304, end: 20160304
  2. BASILIXIMAB [Suspect]
     Active Substance: BASILIXIMAB
     Dosage: 20 MG, QD
     Route: 042
     Dates: start: 20160308, end: 20160308
  3. AMBROXOL HYDROCHLORIDE [Concomitant]
     Active Substance: AMBROXOL HYDROCHLORIDE
     Dosage: 30 MG, BID
     Route: 055
     Dates: start: 20160304, end: 20160311
  4. FUROSEMIDE. [Concomitant]
     Active Substance: FUROSEMIDE
     Indication: POLYURIA
     Dosage: 100 MG, UNK
     Route: 042
     Dates: start: 20160304, end: 20160307
  5. SULFAMETHOXAZOLE [Concomitant]
     Active Substance: SULFAMETHOXAZOLE
     Indication: ANTIFUNGAL PROPHYLAXIS
     Dosage: 1 DF, BID
     Route: 048
     Dates: start: 20160328
  6. ALPROSTADIL. [Concomitant]
     Active Substance: ALPROSTADIL
     Indication: CARDIOVASCULAR INSUFFICIENCY
     Dosage: 10 UG, QD
     Route: 042
     Dates: start: 20160304, end: 20160307
  7. MYFORTIC [Suspect]
     Active Substance: MYCOPHENOLATE SODIUM
     Indication: PROPHYLAXIS AGAINST TRANSPLANT REJECTION
     Dosage: 540 MG, BID
     Route: 048
     Dates: start: 20160310, end: 20160329
  8. METHYLPREDNISOLONE. [Suspect]
     Active Substance: METHYLPREDNISOLONE
     Dosage: 500 MG, QD
     Route: 065
     Dates: start: 20160306, end: 20160307
  9. METHYLPREDNISOLONE. [Suspect]
     Active Substance: METHYLPREDNISOLONE
     Dosage: 360 MG, QD
     Route: 065
     Dates: start: 20160307, end: 20160307
  10. DOPAMINE [Concomitant]
     Active Substance: DOPAMINE\DOPAMINE HYDROCHLORIDE
     Indication: CARDIOVASCULAR INSUFFICIENCY
     Dosage: 100 MG, UNK
     Route: 042
     Dates: start: 20160304, end: 20160307
  11. GLUTATHIONE [Concomitant]
     Active Substance: GLUTATHIONE
     Indication: LIVER DISORDER
     Dosage: 1800 MG, QD
     Route: 042
     Dates: start: 20160304, end: 20160310
  12. PROTAMINE SULFATE. [Concomitant]
     Active Substance: PROTAMINE SULFATE
     Indication: ANTICOAGULANT THERAPY
     Dosage: 50 MG, UNK
     Route: 042
     Dates: start: 20160304, end: 20160304
  13. NIFEDIPINE. [Concomitant]
     Active Substance: NIFEDIPINE
     Dosage: 30 MG, QD
     Route: 048
     Dates: start: 20160307, end: 20160310
  14. RECOMBINANT HUMAN ERYTHROPOIETIN [Concomitant]
     Active Substance: ERYTHROPOIETIN
     Indication: NUTRITIONAL SUPPLEMENTATION
     Dosage: 10000 IU, QOD
     Route: 042
     Dates: start: 20160311, end: 20160314
  15. PREDNISONE. [Suspect]
     Active Substance: PREDNISONE
     Dosage: 60 MG, QD
     Route: 065
     Dates: start: 20160308, end: 20160309
  16. PREDNISONE. [Suspect]
     Active Substance: PREDNISONE
     Dosage: 10 MG, QD
     Route: 065
     Dates: start: 20160312
  17. DILTIAZEM HYDROCHLORIDE. [Concomitant]
     Active Substance: DILTIAZEM HYDROCHLORIDE
     Indication: HYPERTENSION
     Dosage: 30 MG, BID
     Route: 048
     Dates: start: 20160306
  18. MANNITOL. [Concomitant]
     Active Substance: MANNITOL
     Indication: DEHYDRATION
     Dosage: 125 ML, UNK
     Route: 042
     Dates: start: 20160303, end: 20160303
  19. TORASEMIDE [Concomitant]
     Active Substance: TORSEMIDE
     Dosage: 10 MG, PRN
     Route: 048
     Dates: start: 20160312, end: 20160318
  20. IRON SUCROSE [Concomitant]
     Active Substance: IRON SUCROSE
     Indication: MINERAL SUPPLEMENTATION
     Dosage: 100 MG, QD
     Route: 042
     Dates: start: 20160310, end: 20160314
  21. MYFORTIC [Suspect]
     Active Substance: MYCOPHENOLATE SODIUM
     Indication: RENAL TRANSPLANT
     Dosage: 720 MG, BID
     Route: 048
     Dates: start: 20160304, end: 20160310
  22. METHYLPREDNISOLONE. [Suspect]
     Active Substance: METHYLPREDNISOLONE
     Indication: PRODUCT USED FOR UNKNOWN INDICATION
     Dosage: 660 MG, QD
     Route: 065
     Dates: start: 20160303, end: 20160303
  23. TACROLIMUS. [Suspect]
     Active Substance: TACROLIMUS
     Dosage: 1.5 MG, BID
     Route: 065
     Dates: start: 20160329
  24. ACARBOSE. [Concomitant]
     Active Substance: ACARBOSE
     Indication: BLOOD GLUCOSE INCREASED
     Dosage: 100 MG, TID
     Route: 048
     Dates: start: 20160315, end: 20160318
  25. GANCICLOVIR. [Concomitant]
     Active Substance: GANCICLOVIR
     Indication: ANTIVIRAL PROPHYLAXIS
     Dosage: 300 MG, BID
     Route: 042
     Dates: start: 20160311, end: 20160325
  26. METOPROLOL TARTRATE. [Concomitant]
     Active Substance: METOPROLOL TARTRATE
     Dosage: 6.25 MG, BID
     Route: 048
     Dates: start: 20160402
  27. TORASEMIDE [Concomitant]
     Active Substance: TORSEMIDE
     Indication: POLYURIA
     Dosage: 10 MG, UNK
     Route: 048
     Dates: start: 20160311, end: 20160312
  28. VITAMIN B6 [Concomitant]
     Active Substance: PYRIDOXINE HYDROCHLORIDE
     Indication: NUTRITIONAL SUPPLEMENTATION
     Dosage: 200 MG, QD
     Route: 042
     Dates: start: 20160304, end: 20160307
  29. PREDNISONE. [Suspect]
     Active Substance: PREDNISONE
     Dosage: 40 MG, QD
     Route: 065
     Dates: start: 20160309, end: 20160310
  30. ALBUMIN [Concomitant]
     Active Substance: ALBUMIN HUMAN
     Indication: NUTRITIONAL SUPPLEMENTATION
     Dosage: 12.5 G, QD
     Route: 042
     Dates: start: 20160303, end: 20160311
  31. LANSOPRAZOLE. [Concomitant]
     Active Substance: LANSOPRAZOLE
     Indication: PROPHYLAXIS
     Dosage: 30 MG, BID
     Route: 048
     Dates: start: 20160308
  32. SPIRONOLACTONE. [Concomitant]
     Active Substance: SPIRONOLACTONE
     Indication: POLYURIA
     Dosage: 20 MG, UNK
     Route: 048
     Dates: start: 20160331, end: 20160407
  33. PREDNISONE. [Suspect]
     Active Substance: PREDNISONE
     Dosage: 20 MG, QD
     Route: 065
     Dates: start: 20160310, end: 20160311
  34. SODIUM BICARBONATE. [Concomitant]
     Active Substance: SODIUM BICARBONATE
     Indication: ACID BASE BALANCE ABNORMAL
     Dosage: 1 G, TID
     Route: 048
     Dates: start: 20160328
  35. TORASEMIDE [Concomitant]
     Active Substance: TORSEMIDE
     Dosage: 10 MG, UNK
     Route: 048
     Dates: start: 20160318, end: 20160328
  36. VITAMIIN C [Concomitant]
     Active Substance: ASCORBIC ACID
     Indication: NUTRITIONAL SUPPLEMENTATION
     Dosage: 2 G, QD
     Route: 042
     Dates: start: 20160304, end: 20160307
  37. NIFEDIPINE. [Concomitant]
     Active Substance: NIFEDIPINE
     Indication: HYPERTENSION
     Dosage: 30 MG, QD
     Route: 048
     Dates: start: 20160306, end: 20160307
  38. DIPYRIDAMOLE. [Concomitant]
     Active Substance: DIPYRIDAMOLE
     Indication: POOR PERIPHERAL CIRCULATION
     Dosage: 15 ML, QD
     Route: 065
     Dates: start: 20160304, end: 20160310
  39. HYDROCHLOROTHIAZIDE. [Concomitant]
     Active Substance: HYDROCHLOROTHIAZIDE
     Indication: SWELLING
     Dosage: 25 MG, PRN
     Route: 048
     Dates: start: 20160407
  40. TACROLIMUS. [Suspect]
     Active Substance: TACROLIMUS
     Dosage: 4 MG, QD
     Route: 065
     Dates: start: 20160307, end: 20160329
  41. AMINO ACID [Concomitant]
     Indication: NUTRITIONAL SUPPLEMENTATION
     Dosage: 250 ML, BID
     Route: 042
     Dates: start: 20160304, end: 20160307
  42. FUROSEMIDE. [Concomitant]
     Active Substance: FUROSEMIDE
     Dosage: 20 MG, UNK
     Route: 048
     Dates: start: 20160328, end: 20160331
  43. MANNITOL. [Concomitant]
     Active Substance: MANNITOL
     Dosage: 250 ML, UNK
     Route: 042
     Dates: start: 20160304, end: 20160304
  44. METOPROLOL TARTRATE. [Concomitant]
     Active Substance: METOPROLOL TARTRATE
     Dosage: 6.25 MG, BID
     Route: 048
     Dates: start: 20160318, end: 20160401
  45. SPIRONOLACTONE. [Concomitant]
     Active Substance: SPIRONOLACTONE
     Indication: SWELLING
  46. HYDROCHLOROTHIAZIDE. [Concomitant]
     Active Substance: HYDROCHLOROTHIAZIDE
     Indication: POLYURIA
     Dosage: 25 MG, QD
     Route: 048
     Dates: start: 20160331, end: 20160404
  47. FUROSEMIDE. [Concomitant]
     Active Substance: FUROSEMIDE
     Indication: POLYURIA
     Dosage: 20 MG, PC3
     Route: 048
     Dates: start: 20160328, end: 20160331
  48. MYFORTIC [Suspect]
     Active Substance: MYCOPHENOLATE SODIUM
     Dosage: 360 MG, BID
     Route: 065
     Dates: start: 20160329
  49. TACROLIMUS. [Suspect]
     Active Substance: TACROLIMUS
     Indication: PROPHYLAXIS AGAINST TRANSPLANT REJECTION
     Dosage: 2 MG, QD
     Route: 065
     Dates: start: 20160306, end: 20160307
  50. PREDNISONE. [Suspect]
     Active Substance: PREDNISONE
     Indication: PROPHYLAXIS AGAINST TRANSPLANT REJECTION
     Dosage: 80 MG, QD
     Route: 065
     Dates: start: 20160307, end: 20160308
  51. AMBROXOL HYDROCHLORIDE [Concomitant]
     Active Substance: AMBROXOL HYDROCHLORIDE
     Indication: PRODUCTIVE COUGH
     Dosage: 30 MG, BID
     Route: 042
     Dates: start: 20160304, end: 20160307
  52. AMOXICILLIN SODIUM W/CLAVULANATE POTASSIUM [Concomitant]
     Active Substance: AMOXICILLIN\CLAVULANATE POTASSIUM
     Indication: ANTIINFLAMMATORY THERAPY
     Dosage: 1.2 G, BID
     Route: 042
     Dates: start: 20160304, end: 20160310
  53. OMEPRAZOLE SODIUM [Concomitant]
     Active Substance: OMEPRAZOLE SODIUM
     Indication: GASTRITIS
     Dosage: 40 MG, BID
     Route: 042
     Dates: start: 20160304, end: 20160310
  54. METOPROLOL TARTRATE. [Concomitant]
     Active Substance: METOPROLOL TARTRATE
     Indication: HYPERTENSION
     Dosage: 25 MG, BID
     Route: 048
     Dates: start: 20160310, end: 20160318

REACTIONS (12)
  - White blood cell count increased [Unknown]
  - Blood creatinine increased [Unknown]
  - Incision site pain [Recovering/Resolving]
  - Lymphocyte count decreased [Unknown]
  - Haemoglobin decreased [Unknown]
  - Neutrophil count increased [Unknown]
  - Back pain [Recovering/Resolving]
  - Blood urine present [Unknown]
  - Blood urea increased [Unknown]
  - C-reactive protein increased [Unknown]
  - Protein urine present [Unknown]
  - Musculoskeletal discomfort [Recovered/Resolved]

NARRATIVE: CASE EVENT DATE: 20160304
